FAERS Safety Report 17273645 (Version 3)
Quarter: 2020Q1

REPORT INFORMATION
  Report Type: Spontaneous
  Country: CA (occurrence: CA)
  Receive Date: 20200115
  Receipt Date: 20200228
  Transmission Date: 20200409
  Serious: Yes (Other)
  Sender: FDA-Public Use
  Company Number: CA-SHIRE-CA202000835

PATIENT

DRUGS (4)
  1. MEZAVANT [Suspect]
     Active Substance: MESALAMINE
     Indication: PRODUCT USED FOR UNKNOWN INDICATION
     Dosage: 1.2 GRAM
     Route: 065
  2. ENTYVIO [Suspect]
     Active Substance: VEDOLIZUMAB
     Indication: COLITIS ULCERATIVE
     Dosage: 300 MILLIGRAM(WEEK 0,2,6,EVERY 8 WEEKS )
     Route: 065
     Dates: start: 20191111
  3. ENTYVIO [Suspect]
     Active Substance: VEDOLIZUMAB
     Dosage: 300 MILLIGRAM(WEEK 0,2,6,EVERY 8 WEEKS )
     Route: 065
     Dates: start: 20191111
  4. PREDNISONE. [Concomitant]
     Active Substance: PREDNISONE
     Indication: PRODUCT USED FOR UNKNOWN INDICATION

REACTIONS (3)
  - Gastrointestinal tract irritation [Unknown]
  - Haematochezia [Unknown]
  - Diarrhoea [Unknown]
